FAERS Safety Report 4310029-X (Version None)
Quarter: 2004Q1

REPORT INFORMATION
  Report Type: 
  Country: None (occurrence: None)
  Receive Date: 20040227
  Receipt Date: 20031209
  Transmission Date: 20041129
  Serious: No
  Sender: FDA-Public Use
  Company Number: FABR-10406

PATIENT
  Age: 45 Year
  Sex: Female

DRUGS (1)
  1. FABRAZYME [Suspect]
     Indication: FABRY'S DISEASE
     Dosage: FABRY DISEASE
     Dates: start: 20031027

REACTIONS (3)
  - AFFECT LABILITY [None]
  - CONSTIPATION [None]
  - MUSCLE CRAMP [None]
